FAERS Safety Report 14353073 (Version 2)
Quarter: 2018Q2

REPORT INFORMATION
  Report Type: Report from Study
  Country: US (occurrence: US)
  Receive Date: 20180104
  Receipt Date: 20180614
  Transmission Date: 20180711
  Serious: Yes (Life-Threatening, Other)
  Sender: FDA-Public Use
  Company Number: US-MYLANLABS-2017M1082670

PATIENT
  Age: 17 Year
  Sex: Male

DRUGS (3)
  1. EPIPEN [Suspect]
     Active Substance: EPINEPHRINE
     Indication: PHARYNGEAL OEDEMA
     Dosage: 0.3 MG, UNK
     Dates: start: 20171217
  2. EPIPEN [Suspect]
     Active Substance: EPINEPHRINE
     Indication: PRURITUS
     Dosage: UNK
     Dates: start: 20171220, end: 20171220
  3. EPIPEN [Suspect]
     Active Substance: EPINEPHRINE
     Indication: URTICARIA

REACTIONS (2)
  - Device failure [Unknown]
  - Drug ineffective [Unknown]

NARRATIVE: CASE EVENT DATE: 20171220
